FAERS Safety Report 9671446 (Version 2)
Quarter: 2013Q4

REPORT INFORMATION
  Report Type: Report from Study
  Country: RO (occurrence: RO)
  Receive Date: 20131106
  Receipt Date: 20131118
  Transmission Date: 20140711
  Serious: Yes (Hospitalization)
  Sender: FDA-Public Use
  Company Number: PHHO2013RO014297

PATIENT
  Sex: 0

DRUGS (10)
  1. DICLOFENAC [Suspect]
     Indication: BACK PAIN
     Dosage: 100 MG, BID
     Dates: start: 20131020, end: 20131029
  2. BLINDED ENALAPRIL [Suspect]
     Indication: CARDIAC FAILURE CHRONIC
     Dosage: DOUBLE BLIND
     Route: 048
     Dates: start: 20120817
  3. BLINDED LCZ696 [Suspect]
     Indication: CARDIAC FAILURE CHRONIC
     Dosage: DOUBLE BLIND
     Route: 048
     Dates: start: 20120817
  4. BLINDED NO TREATMENT RECEIVED [Suspect]
     Indication: CARDIAC FAILURE CHRONIC
     Dosage: DOUBLE BLIND
     Route: 048
     Dates: start: 20120817
  5. FUROSEMIDE [Concomitant]
     Indication: CARDIAC FAILURE
     Dosage: 40 MG, QD
     Dates: start: 20130826, end: 20131029
  6. FUROSEMIDE [Concomitant]
     Dosage: 40 MG, BID
     Dates: start: 20131030
  7. SPIRONOLACTONE [Concomitant]
     Indication: CARDIAC FAILURE
     Dosage: 25 MG, BID
     Dates: start: 20130819, end: 20131029
  8. TENAXUM [Concomitant]
     Indication: HYPERTENSION
     Dosage: 1 MG, BID
     Dates: start: 20130819
  9. LERIDIP [Concomitant]
     Indication: HYPERTENSION
     Dosage: 10 MG, BID
     Dates: start: 20130819
  10. CONCOR [Concomitant]
     Indication: CARDIAC FAILURE
     Dosage: 5 MG, QD
     Dates: start: 20110427

REACTIONS (1)
  - Hypertensive crisis [Recovered/Resolved]
